FAERS Safety Report 7978948-0 (Version None)
Quarter: 2011Q4

REPORT INFORMATION
  Report Type: 
  Country: None (occurrence: None)
  Receive Date: 20111214
  Receipt Date: 20111213
  Transmission Date: 20120403
  Serious: Yes (Hospitalization)
  Sender: FDA-Public Use
  Company Number: IT-SANOFI-AVENTIS-2011SA076316

PATIENT
  Age: 81 Year
  Sex: Male

DRUGS (7)
  1. CEFTAZIDIME [Suspect]
     Route: 030
     Dates: start: 20111028, end: 20111104
  2. ACETYLSALICYLIC ACID SRT [Suspect]
     Route: 048
     Dates: start: 20100101, end: 20111104
  3. ZOLOFT [Suspect]
     Route: 048
     Dates: start: 20100101, end: 20111104
  4. OMEPRAZOLE [Concomitant]
     Route: 048
  5. CORDARONE [Suspect]
     Route: 048
     Dates: start: 20080101, end: 20111104
  6. HALOPERIDOL [Concomitant]
     Indication: DEMENTIA
     Route: 048
  7. LASIX [Suspect]
     Route: 048
     Dates: start: 20080101, end: 20111104

REACTIONS (2)
  - MELAENA [None]
  - ANAEMIA [None]
